FAERS Safety Report 15448274 (Version 1)
Quarter: 2018Q3

REPORT INFORMATION
  Report Type: Spontaneous
  Country: US (occurrence: US)
  Receive Date: 20180926
  Receipt Date: 20180926
  Transmission Date: 20181010
  Serious: No
  Sender: FDA-Public Use
  Company Number: None

PATIENT
  Age: 8 Year
  Sex: Male
  Weight: 24.75 kg

DRUGS (1)
  1. VYVANSE [Suspect]
     Active Substance: LISDEXAMFETAMINE DIMESYLATE
     Dates: start: 20170101, end: 20180101

REACTIONS (5)
  - Anger [None]
  - Suicidal ideation [None]
  - Self esteem decreased [None]
  - Irritability [None]
  - Therapy cessation [None]
